FAERS Safety Report 14332701 (Version 3)
Quarter: 2018Q1

REPORT INFORMATION
  Report Type: Spontaneous
  Country: US (occurrence: US)
  Receive Date: 20171228
  Receipt Date: 20180104
  Transmission Date: 20180509
  Serious: Yes (Other)
  Sender: FDA-Public Use
  Company Number: US-PFIZER INC-2017549255

PATIENT
  Age: 33 Year
  Sex: Female

DRUGS (4)
  1. ONDANSETRON [Concomitant]
     Active Substance: ONDANSETRON
     Dosage: UNK
     Route: 042
  2. PITOCIN [Concomitant]
     Active Substance: OXYTOCIN
     Dosage: UNK
     Route: 042
  3. MORPHINE SULFATE. [Suspect]
     Active Substance: MORPHINE SULFATE
     Indication: CAESAREAN SECTION
     Dosage: 150 UG, UNK
     Route: 037
  4. BUPIVACAINE HCL [Concomitant]
     Active Substance: BUPIVACAINE HYDROCHLORIDE
     Indication: CAESAREAN SECTION
     Dosage: 1.5 ML, UNK
     Route: 037

REACTIONS (3)
  - Hypothermia [Recovering/Resolving]
  - Product use in unapproved indication [Unknown]
  - Bradycardia [Recovering/Resolving]
